FAERS Safety Report 23796858 (Version 2)
Quarter: 2024Q2

REPORT INFORMATION
  Report Type: Spontaneous
  Country: US (occurrence: US)
  Receive Date: 20240430
  Receipt Date: 20240520
  Transmission Date: 20240716
  Serious: Yes (Hospitalization, Other)
  Sender: FDA-Public Use
  Company Number: US-BEH-2024171098

PATIENT
  Age: 20 Year
  Sex: Male

DRUGS (4)
  1. HUMATE-P [Suspect]
     Active Substance: HUMAN COAGULATION FACTOR VIII/VON WILLEBRAND FACTOR COMPLEX
     Indication: Von Willebrand^s disease
     Dosage: 4500 IU,  PRN
     Route: 042
     Dates: start: 201308
  2. HUMATE-P [Suspect]
     Active Substance: HUMAN COAGULATION FACTOR VIII/VON WILLEBRAND FACTOR COMPLEX
     Dosage: 4500 IU, DAILY
     Route: 042
     Dates: start: 20230223, end: 20230302
  3. HUMATE-P [Suspect]
     Active Substance: HUMAN COAGULATION FACTOR VIII/VON WILLEBRAND FACTOR COMPLEX
     Dosage: 4500 IU, DAILY OR EVERY OTHER DAY
     Route: 042
     Dates: start: 20240405, end: 20240413
  4. TYLENOL [Concomitant]
     Active Substance: ACETAMINOPHEN

REACTIONS (5)
  - Shoulder fracture [Not Recovered/Not Resolved]
  - Joint dislocation [Not Recovered/Not Resolved]
  - Haemarthrosis [Recovered/Resolved]
  - Road traffic accident [Unknown]
  - Repetitive strain injury [Unknown]

NARRATIVE: CASE EVENT DATE: 20230223
